FAERS Safety Report 9335234 (Version 1)
Quarter: 2013Q2

REPORT INFORMATION
  Report Type: Spontaneous
  Country: US (occurrence: US)
  Receive Date: 20130606
  Receipt Date: 20130606
  Transmission Date: 20140414
  Serious: Yes (Hospitalization)
  Sender: FDA-Public Use
  Company Number: US-PFIZER INC-2013167501

PATIENT
  Sex: Male

DRUGS (1)
  1. INLYTA [Suspect]
     Dosage: UNK

REACTIONS (2)
  - Diverticulitis [Unknown]
  - Hypertension [Unknown]
